FAERS Safety Report 5356871-8 (Version None)
Quarter: 2007Q2

REPORT INFORMATION
  Report Type: 
  Country: None (occurrence: None)
  Receive Date: 20070614
  Receipt Date: 20070607
  Transmission Date: 20071010
  Serious: Yes (Other)
  Sender: FDA-Public Use
  Company Number: US-ROCHE-501460

PATIENT
  Sex: Female

DRUGS (1)
  1. ROCALTROL [Suspect]
     Indication: DRUG USE FOR UNKNOWN INDICATION
     Dosage: PRESCRIBED IN JANUARY 2007.
     Route: 065
     Dates: end: 20070501

REACTIONS (3)
  - ABASIA [None]
  - PAIN [None]
  - RENAL FAILURE CHRONIC [None]
